FAERS Safety Report 9457706 (Version 1)
Quarter: 2013Q3

REPORT INFORMATION
  Report Type: Spontaneous
  Country: GB (occurrence: GB)
  Receive Date: 20130814
  Receipt Date: 20130814
  Transmission Date: 20140515
  Serious: Yes (Hospitalization)
  Sender: FDA-Public Use
  Company Number: GB-NOVOPROD-384785

PATIENT
  Age: 13 Year
  Sex: Male

DRUGS (1)
  1. NOVORAPID [Suspect]
     Indication: TYPE 1 DIABETES MELLITUS
     Dosage: UNK
     Route: 065
     Dates: start: 2008

REACTIONS (3)
  - Chest pain [Recovered/Resolved]
  - Drug ineffective [Recovered/Resolved]
  - Blood glucose increased [Recovered/Resolved]
